FAERS Safety Report 13854009 (Version 1)
Quarter: 2017Q3

REPORT INFORMATION
  Report Type: Spontaneous
  Country: FR (occurrence: FR)
  Receive Date: 20170809
  Receipt Date: 20170809
  Transmission Date: 20171127
  Serious: Yes (Other)
  Sender: FDA-Public Use
  Company Number: FR-ASCEND THERAPEUTICS-2024414

PATIENT
  Age: 62 Year
  Sex: Female

DRUGS (3)
  1. PROGESTAN (PROGESTERONE) [Suspect]
     Active Substance: PROGESTERONE
     Route: 048
     Dates: start: 2008
  2. TRAMADOL. [Concomitant]
     Active Substance: TRAMADOL
     Route: 065
  3. ESTROGEL [Suspect]
     Active Substance: ESTRADIOL
     Indication: MENOPAUSE
     Route: 062
     Dates: start: 2008

REACTIONS (2)
  - Meningioma [Not Recovered/Not Resolved]
  - Headache [Not Recovered/Not Resolved]

NARRATIVE: CASE EVENT DATE: 20170607
